FAERS Safety Report 5929243-2 (Version None)
Quarter: 2008Q4

REPORT INFORMATION
  Report Type: 
  Country: None (occurrence: None)
  Receive Date: 20081023
  Receipt Date: 20081023
  Transmission Date: 20090506
  Serious: No
  Sender: FDA-Public Use
  Company Number: None

PATIENT
  Age: 31 Year
  Sex: Female
  Weight: 79.3795 kg

DRUGS (1)
  1. CHANTIX [Suspect]
     Indication: SMOKING CESSATION THERAPY
     Dosage: 0.5TO1MG 2XDAILY PO
     Route: 048

REACTIONS (3)
  - DEPRESSED MOOD [None]
  - DEPRESSION [None]
  - ILL-DEFINED DISORDER [None]
